FAERS Safety Report 15575989 (Version 1)
Quarter: 2018Q4

REPORT INFORMATION
  Report Type: Spontaneous
  Country: US (occurrence: US)
  Receive Date: 20181101
  Receipt Date: 20181101
  Transmission Date: 20190205
  Serious: No
  Sender: FDA-Public Use
  Company Number: US-LEXICON PHARMACEUTICALS, INC-18-1606-01264

PATIENT
  Sex: Female

DRUGS (1)
  1. TELOTRISTAT ETHYL [Suspect]
     Active Substance: TELOTRISTAT ETHYL
     Indication: BREAST CANCER FEMALE
     Route: 048
     Dates: start: 20180619

REACTIONS (14)
  - Aspartate aminotransferase increased [Unknown]
  - Iron deficiency anaemia [Unknown]
  - Glomerular filtration rate decreased [Unknown]
  - Diarrhoea [Unknown]
  - Haemoglobin decreased [Unknown]
  - Neutrophil count increased [Unknown]
  - Blood bilirubin decreased [Unknown]
  - Platelet count decreased [Unknown]
  - Lymphocyte count [Unknown]
  - Abdominal pain [Recovered/Resolved]
  - Red cell distribution width increased [Unknown]
  - Blood alkaline phosphatase increased [Unknown]
  - Alanine aminotransferase increased [Unknown]
  - Abdominal distension [Unknown]
